FAERS Safety Report 16914853 (Version 3)
Quarter: 2019Q4

REPORT INFORMATION
  Report Type: Spontaneous
  Country: US (occurrence: US)
  Receive Date: 20191014
  Receipt Date: 20191111
  Transmission Date: 20200122
  Serious: No
  Sender: FDA-Public Use
  Company Number: US-AMGEN INC.-USASP2019167355

PATIENT
  Age: 17 Year
  Sex: Female
  Weight: 69.39 kg

DRUGS (1)
  1. AIMOVIG [Suspect]
     Active Substance: ERENUMAB-AOOE
     Indication: MIGRAINE
     Dosage: 70 MILLIGRAM, QMO (UNSUCCESSFUL ATTEMPT)
     Route: 065
     Dates: start: 20191007

REACTIONS (3)
  - Off label use [Unknown]
  - Accidental exposure to product [Unknown]
  - Incorrect route of product administration [Unknown]

NARRATIVE: CASE EVENT DATE: 20191007
